FAERS Safety Report 20488760 (Version 1)
Quarter: 2022Q1

REPORT INFORMATION
  Report Type: Spontaneous
  Country: US (occurrence: US)
  Receive Date: 20220218
  Receipt Date: 20220218
  Transmission Date: 20220424
  Serious: No
  Sender: FDA-Public Use
  Company Number: US-SANOFI-00970653

PATIENT
  Age: 82 Year
  Sex: Female

DRUGS (1)
  1. LANTUS SOLOSTAR [Suspect]
     Active Substance: INSULIN GLARGINE
     Indication: Type 2 diabetes mellitus
     Dosage: DRUG STRUCTURE DOSAGE : 55 UNITS AM + 25 UNITS PM DRUG INTERVAL DOSAGE : TWICE A DAY, BID

REACTIONS (2)
  - Illness [Recovering/Resolving]
  - Inappropriate schedule of product administration [Unknown]
